FAERS Safety Report 6706624-0 (Version None)
Quarter: 2010Q2

REPORT INFORMATION
  Report Type: 
  Country: None (occurrence: None)
  Receive Date: 20100503
  Receipt Date: 20100422
  Transmission Date: 20101027
  Serious: Yes (Other)
  Sender: FDA-Public Use
  Company Number: US-JNJCH-2010010208

PATIENT
  Age: 83 Year
  Sex: Female
  Weight: 68 kg

DRUGS (4)
  1. LISTERINE AGENT COOL BLUE GLACIER MINT [Suspect]
     Indication: DENTAL DISORDER PROPHYLAXIS
     Dosage: TEXT:A CAPTUL 1X TIME
     Route: 048
  2. VITAMINS [Concomitant]
     Indication: SUPPLEMENTATION THERAPY
     Dosage: TEXT:1X DAILY
     Route: 065
  3. FISH OIL [Concomitant]
     Indication: SUPPLEMENTATION THERAPY
     Dosage: TEXT:1X DAILY
     Route: 065
  4. CALCIUM [Concomitant]
     Indication: SUPPLEMENTATION THERAPY
     Dosage: TEXT:1X DAILY
     Route: 065

REACTIONS (3)
  - TOOTH INJURY [None]
  - TOOTHACHE [None]
  - WRONG TECHNIQUE IN DRUG USAGE PROCESS [None]
